FAERS Safety Report 10411225 (Version 2)
Quarter: 2014Q3

REPORT INFORMATION
  Report Type: Spontaneous
  Country: US (occurrence: US)
  Receive Date: 20140826
  Receipt Date: 20140826
  Transmission Date: 20150326
  Serious: No
  Sender: FDA-Public Use
  Company Number: US-ASTRAZENECA-2013SE73496

PATIENT
  Age: 59 Year
  Sex: Male
  Weight: 90.7 kg

DRUGS (6)
  1. ZYRTEC [Concomitant]
     Active Substance: CETIRIZINE HYDROCHLORIDE
     Indication: MULTIPLE ALLERGIES
  2. COMBIVENT [Concomitant]
     Active Substance: ALBUTEROL SULFATE\IPRATROPIUM BROMIDE
     Indication: EMPHYSEMA
  3. DIOVAN [Concomitant]
     Active Substance: VALSARTAN
     Indication: BLOOD PRESSURE
  4. IPATROPI/ALBU [Concomitant]
     Dosage: 0.5/3ML
  5. SYMBICORT [Suspect]
     Active Substance: BUDESONIDE\FORMOTEROL FUMARATE DIHYDRATE
     Indication: EMPHYSEMA
     Dosage: 160/4.5 MCG, 2 PUFFS, BID
     Route: 055
  6. KENALOG [Concomitant]
     Active Substance: TRIAMCINOLONE ACETONIDE
     Indication: HYPERSENSITIVITY
     Dosage: 2 INJECTIONS A YEAR

REACTIONS (7)
  - Drug dose omission [Unknown]
  - Parosmia [Unknown]
  - Dyspnoea [Unknown]
  - Lip disorder [Recovered/Resolved]
  - Intentional product misuse [Unknown]
  - Total lung capacity decreased [Unknown]
  - Hypergeusia [Unknown]

NARRATIVE: CASE EVENT DATE: 2014
